FAERS Safety Report 11766366 (Version 1)
Quarter: 2015Q4

REPORT INFORMATION
  Report Type: Spontaneous
  Country: FR (occurrence: FR)
  Receive Date: 20151123
  Receipt Date: 20151123
  Transmission Date: 20160304
  Serious: Yes (Other)
  Sender: FDA-Public Use
  Company Number: FR-CIPLA LTD.-2015FR08748

PATIENT

DRUGS (3)
  1. TAXANE [Suspect]
     Active Substance: UNSPECIFIED INGREDIENT
     Indication: OVARIAN CANCER
     Route: 065
  2. CARBOPLATIN. [Suspect]
     Active Substance: CARBOPLATIN
     Indication: OVARIAN CANCER
     Route: 065
  3. CISPLATIN. [Suspect]
     Active Substance: CISPLATIN
     Indication: OVARIAN CANCER
     Route: 065

REACTIONS (5)
  - Leriche syndrome [Unknown]
  - Drug resistance [Unknown]
  - Ovarian cancer [None]
  - Malignant neoplasm progression [None]
  - Disease progression [Unknown]
